FAERS Safety Report 22610685 (Version 2)
Quarter: 2023Q4

REPORT INFORMATION
  Report Type: Spontaneous
  Country: CA (occurrence: CA)
  Receive Date: 20230616
  Receipt Date: 20231030
  Transmission Date: 20240110
  Serious: Yes (Other)
  Sender: FDA-Public Use
  Company Number: CA-PFIZER INC-202300197449

PATIENT
  Age: 28 Year
  Sex: Female

DRUGS (1)
  1. RUXIENCE [Suspect]
     Active Substance: RITUXIMAB-PVVR
     Indication: Granulomatosis with polyangiitis
     Dosage: 1000 MG EVERY 6 MONTHS
     Route: 042
     Dates: start: 20230605

REACTIONS (6)
  - Nausea [Recovered/Resolved]
  - Vomiting [Recovered/Resolved]
  - Drug intolerance [Unknown]
  - Off label use [Unknown]
  - Off label use [Unknown]
  - Intentional product use issue [Unknown]

NARRATIVE: CASE EVENT DATE: 20230605
